FAERS Safety Report 5959061-0 (Version None)
Quarter: 2008Q4

REPORT INFORMATION
  Report Type: 
  Country: None (occurrence: None)
  Receive Date: 20081120
  Receipt Date: 20080111
  Transmission Date: 20090506
  Serious: No
  Sender: FDA-Public Use
  Company Number: A0593283A

PATIENT
  Age: 43 Year
  Sex: Female

DRUGS (4)
  1. WELLBUTRIN SR [Suspect]
     Indication: DEPRESSION
     Dosage: 150MG THREE TIMES PER DAY
     Route: 048
  2. PARNATE [Suspect]
     Indication: DEPRESSION
     Dosage: 10MG THREE TIMES PER DAY
     Route: 048
     Dates: start: 19980101
  3. DEXEDRINE [Suspect]
     Indication: NARCOLEPSY
     Dosage: 15MG PER DAY
     Route: 048
     Dates: start: 20080107
  4. ALKASELTZER [Concomitant]

REACTIONS (5)
  - DRUG INEFFECTIVE [None]
  - FATIGUE [None]
  - OVERDOSE [None]
  - SEDATION [None]
  - SOMNOLENCE [None]
